FAERS Safety Report 5696230-1 (Version None)
Quarter: 2008Q2

REPORT INFORMATION
  Report Type: 
  Country: None (occurrence: None)
  Receive Date: 20080407
  Receipt Date: 20080326
  Transmission Date: 20081010
  Serious: Yes (Other)
  Sender: FDA-Public Use
  Company Number: US-PFIZER INC-2008027566

PATIENT
  Sex: Female
  Weight: 52.2 kg

DRUGS (3)
  1. CHANTIX [Suspect]
     Indication: SMOKING CESSATION THERAPY
     Route: 048
  2. VITAMINS [Concomitant]
  3. ALEVE [Concomitant]
     Indication: OSTEOARTHRITIS

REACTIONS (1)
  - CATARACT OPERATION [None]
